FAERS Safety Report 11189173 (Version 1)
Quarter: 2015Q2

REPORT INFORMATION
  Report Type: Spontaneous
  Country: US (occurrence: US)
  Receive Date: 20150615
  Receipt Date: 20150615
  Transmission Date: 20150821
  Serious: Yes (Other)
  Sender: FDA-Public Use
  Company Number: US-SA-2015SA081314

PATIENT
  Age: 63 Year
  Sex: Male

DRUGS (1)
  1. BCG FOR IMMUNOTHERAPY [Suspect]
     Active Substance: BACILLUS CALMETTE-GUERIN ANTIGEN, UNSPECIFIED SUBSTRAIN
     Indication: TRANSITIONAL CELL CARCINOMA
     Route: 043

REACTIONS (6)
  - Dermatitis allergic [Unknown]
  - Hypersensitivity [Unknown]
  - Pyrexia [Unknown]
  - Rash morbilliform [Unknown]
  - Rash pruritic [Unknown]
  - Macule [Unknown]
